FAERS Safety Report 6955268-4 (Version None)
Quarter: 2010Q3

REPORT INFORMATION
  Report Type: 
  Country: None (occurrence: None)
  Receive Date: 20100830
  Receipt Date: 20100816
  Transmission Date: 20110219
  Serious: Yes (Other)
  Sender: FDA-Public Use
  Company Number: PHHY2010JP54234

PATIENT
  Sex: Female

DRUGS (4)
  1. ICL670A ICL+DISTAB [Suspect]
     Indication: IRON OVERLOAD
     Dosage: 250 MG, QD
     Route: 048
     Dates: start: 20091104, end: 20091212
  2. FOSMICIN [Concomitant]
     Indication: GASTROENTERITIS
     Dosage: 150 MG, UNK
     Route: 048
     Dates: start: 20091104, end: 20091217
  3. LACTOBACILLUS BIFIDUS [Concomitant]
     Indication: GASTROENTERITIS
     Dosage: 3.0 G, UNK
     Route: 048
     Dates: start: 20091104, end: 20091217
  4. MUCOSTA [Concomitant]
     Indication: GASTROENTERITIS
     Dosage: 300 MG, UNK
     Route: 048
     Dates: start: 20091104, end: 20091210

REACTIONS (6)
  - CONSTIPATION [None]
  - CONVULSION [None]
  - DEPRESSED LEVEL OF CONSCIOUSNESS [None]
  - INSOMNIA [None]
  - NAUSEA [None]
  - VOMITING [None]
